FAERS Safety Report 13861390 (Version 3)
Quarter: 2017Q4

REPORT INFORMATION
  Report Type: Report from Study
  Country: EG (occurrence: EG)
  Receive Date: 20170811
  Receipt Date: 20171027
  Transmission Date: 20180320
  Serious: Yes (Other)
  Sender: FDA-Public Use
  Company Number: EG-SA-2017SA145732

PATIENT
  Age: 22 Year
  Sex: Male

DRUGS (5)
  1. CLIKSTAR [Suspect]
     Active Substance: CLIKSTAR
     Indication: TYPE 1 DIABETES MELLITUS
  2. ACTRAPID [Concomitant]
     Active Substance: INSULIN HUMAN
     Route: 058
  3. LANTUS [Suspect]
     Active Substance: INSULIN GLARGINE
     Indication: TYPE 1 DIABETES MELLITUS
     Route: 058
     Dates: start: 20130307, end: 201707
  4. LANTUS [Suspect]
     Active Substance: INSULIN GLARGINE
     Indication: TYPE 1 DIABETES MELLITUS
     Route: 058
  5. CLIKSTAR [Suspect]
     Active Substance: CLIKSTAR
     Indication: TYPE 1 DIABETES MELLITUS
     Dates: end: 201707

REACTIONS (3)
  - Coma [Recovered/Resolved]
  - Device issue [Unknown]
  - Hyperglycaemia [Recovered/Resolved]

NARRATIVE: CASE EVENT DATE: 201707
